FAERS Safety Report 14481285 (Version 2)
Quarter: 2018Q1

REPORT INFORMATION
  Report Type: Spontaneous
  Country: US (occurrence: US)
  Receive Date: 20180202
  Receipt Date: 20180209
  Transmission Date: 20180509
  Serious: Yes (Other)
  Sender: FDA-Public Use
  Company Number: US-JNJFOC-20180132652

PATIENT
  Sex: Female
  Weight: 90.72 kg

DRUGS (6)
  1. TERCONAZOLE. [Suspect]
     Active Substance: TERCONAZOLE
     Indication: URINARY TRACT INFECTION
     Route: 065
  2. TERAZOL [Suspect]
     Active Substance: TERCONAZOLE
     Indication: FUNGAL INFECTION
     Route: 061
  3. TERAZOL [Suspect]
     Active Substance: TERCONAZOLE
     Indication: URINARY TRACT INFECTION
     Route: 061
  4. TERAZOL [Suspect]
     Active Substance: TERCONAZOLE
     Indication: CANDIDA INFECTION
     Route: 061
  5. TERCONAZOLE. [Suspect]
     Active Substance: TERCONAZOLE
     Indication: CANDIDA INFECTION
     Route: 065
  6. TERCONAZOLE. [Suspect]
     Active Substance: TERCONAZOLE
     Indication: FUNGAL INFECTION
     Route: 065

REACTIONS (3)
  - Chronic obstructive pulmonary disease [Not Recovered/Not Resolved]
  - Drug dose omission [Unknown]
  - Product availability issue [Unknown]

NARRATIVE: CASE EVENT DATE: 2005
